FAERS Safety Report 7024768-3 (Version None)
Quarter: 2010Q3

REPORT INFORMATION
  Report Type: 
  Country: None (occurrence: None)
  Receive Date: 20100920
  Receipt Date: 20091123
  Transmission Date: 20110219
  Serious: Yes (Hospitalization, Other)
  Sender: FDA-Public Use
  Company Number: 2009157097

PATIENT
  Age: 15 Year
  Sex: Female
  Weight: 80 kg

DRUGS (14)
  1. DILANTIN-125 [Suspect]
     Indication: GRAND MAL CONVULSION
     Dates: start: 20060417, end: 20060522
  2. KEPPRA [Concomitant]
  3. PHENOBARBITAL TAB [Concomitant]
  4. OCUFLOX (FLOXACIN) [Concomitant]
  5. ATIVAN [Concomitant]
  6. BACITRACIN [Concomitant]
  7. ACETAMINOPHEN [Concomitant]
  8. AQUAPHOR HEALING OINTMENT (BISABOLOL, CERESIN, PARAFFIN SOFT, PARAFFIN [Concomitant]
  9. ZANTAC [Concomitant]
  10. PROPOFOL [Concomitant]
  11. GEODON [Concomitant]
  12. PREVACID [Concomitant]
  13. CEFOTAXIME SODIUM [Concomitant]
  14. VANCOMYCIN [Concomitant]

REACTIONS (1)
  - STEVENS-JOHNSON SYNDROME [None]
